FAERS Safety Report 8406531-1 (Version None)
Quarter: 2012Q2

REPORT INFORMATION
  Report Type: 
  Country: None (occurrence: None)
  Receive Date: 20120529
  Receipt Date: 20090111
  Transmission Date: 20120825
  Serious: Yes (Other)
  Sender: FDA-Public Use
  Company Number: JP-2012-13887

PATIENT

DRUGS (2)
  1. PLETAL [Suspect]
  2. PROBUCOL [Suspect]

REACTIONS (1)
  - RIB FRACTURE [None]
